FAERS Safety Report 11913623 (Version 3)
Quarter: 2016Q1

REPORT INFORMATION
  Report Type: Spontaneous
  Country: US (occurrence: US)
  Receive Date: 20160113
  Receipt Date: 20160310
  Transmission Date: 20160526
  Serious: Yes (Hospitalization)
  Sender: FDA-Public Use
  Company Number: US-PFIZER INC-2015461565

PATIENT
  Age: 55 Year
  Sex: Female
  Weight: 54 kg

DRUGS (5)
  1. PREMARIN [Suspect]
     Active Substance: ESTROGENS, CONJUGATED
     Dosage: 0.25 DF (A FOURTH OF APPLICATOR), 3X/WEEK AND A DAB ON THE OUTSIDE ONCE A WEEK
     Route: 067
     Dates: start: 20151214, end: 20151216
  2. PERCOCET [Concomitant]
     Active Substance: ACETAMINOPHEN\OXYCODONE HYDROCHLORIDE
     Dosage: UNK, AS NEEDED
  3. PREMARIN [Suspect]
     Active Substance: ESTROGENS, CONJUGATED
     Indication: VULVOVAGINAL DRYNESS
     Dosage: UNK
  4. ENBREL [Concomitant]
     Active Substance: ETANERCEPT
     Indication: IMMUNE SYSTEM DISORDER
     Dosage: 50 MG, WEEKLY
     Dates: start: 2009
  5. PERCOCET [Concomitant]
     Active Substance: ACETAMINOPHEN\OXYCODONE HYDROCHLORIDE
     Indication: PAIN
     Dosage: (10 MG/325 MG), 3X/DAY
     Route: 048
     Dates: start: 2009

REACTIONS (8)
  - Vulvovaginal pain [Recovered/Resolved]
  - Vaginal erosion [Recovering/Resolving]
  - Dysuria [Recovering/Resolving]
  - Vulvovaginal swelling [Recovering/Resolving]
  - Vaginal haemorrhage [Recovering/Resolving]
  - Product use issue [Unknown]
  - Intentional product misuse [Recovered/Resolved]
  - Urticaria [Recovering/Resolving]

NARRATIVE: CASE EVENT DATE: 20151214
